FAERS Safety Report 11530342 (Version 1)
Quarter: 2015Q3

REPORT INFORMATION
  Report Type: Spontaneous
  Country: US (occurrence: US)
  Receive Date: 20150921
  Receipt Date: 20150921
  Transmission Date: 20151125
  Serious: No
  Sender: FDA-Public Use
  Company Number: US-GLAXOSMITHKLINE-US2015GSK130194

PATIENT
  Age: 48 Year
  Sex: Female

DRUGS (6)
  1. LOSARTAN + HYDROCHLOROTHIAZIDE [Suspect]
     Active Substance: HYDROCHLOROTHIAZIDE\LOSARTAN
     Indication: HYPERTENSION
     Dosage: 100/25 MG QD
  2. WELLBUTRIN XL [Suspect]
     Active Substance: BUPROPION HYDROCHLORIDE
     Dosage: 150 UNK, QD (FOR ONE WEEK THEN INCREASE TO 300 MG DAILY)
     Route: 048
     Dates: start: 201306
  3. WELLBUTRIN XL [Suspect]
     Active Substance: BUPROPION HYDROCHLORIDE
     Dosage: 300 MG, QD
     Route: 048
     Dates: start: 201306
  4. WELLBUTRIN XL [Suspect]
     Active Substance: BUPROPION HYDROCHLORIDE
     Indication: DEPRESSION
     Dosage: 300 MG, QD
     Route: 048
     Dates: start: 201306
  5. WELLBUTRIN XL [Suspect]
     Active Substance: BUPROPION HYDROCHLORIDE
     Indication: MENOPAUSE
     Dosage: 150 UNK, QD (FOR ONE WEEK THEN INCREASE TO 300 MG DAILY)
     Route: 048
     Dates: start: 201306
  6. LOSARTAN POTASSIUM. [Suspect]
     Active Substance: LOSARTAN POTASSIUM
     Indication: HYPERTENSION
     Dosage: 100/25 MG QD

REACTIONS (7)
  - Skin exfoliation [Unknown]
  - Menopause [Unknown]
  - Depression [Unknown]
  - Urticaria [Recovered/Resolved]
  - Skin lesion [Unknown]
  - Pruritus [Unknown]
  - Drug interaction [Unknown]

NARRATIVE: CASE EVENT DATE: 20150831
